FAERS Safety Report 22264350 (Version 1)
Quarter: 2023Q2

REPORT INFORMATION
  Report Type: Spontaneous
  Country: US (occurrence: US)
  Receive Date: 20230428
  Receipt Date: 20230428
  Transmission Date: 20230722
  Serious: No
  Sender: FDA-Public Use
  Company Number: US-BAYER-2023A056378

PATIENT
  Age: 22 Year
  Sex: Male

DRUGS (2)
  1. ALEVE [Suspect]
     Active Substance: NAPROXEN SODIUM
     Indication: Product used for unknown indication
  2. HUMIRA [Concomitant]
     Active Substance: ADALIMUMAB
     Indication: Psoriatic arthropathy
     Dosage: UNK
     Route: 058
     Dates: start: 20220916

REACTIONS (3)
  - Drug eruption [Recovered/Resolved]
  - Wound infection bacterial [Unknown]
  - Wound secretion [Recovering/Resolving]

NARRATIVE: CASE EVENT DATE: 20230101
